FAERS Safety Report 8574027-2 (Version None)
Quarter: 2012Q3

REPORT INFORMATION
  Report Type: 
  Country: None (occurrence: None)
  Receive Date: 20120806
  Receipt Date: 20120724
  Transmission Date: 20120928
  Serious: No
  Sender: FDA-Public Use
  Company Number: ES-ELI_LILLY_AND_COMPANY-ES201205010667

PATIENT
  Age: 70 Year
  Sex: Female

DRUGS (5)
  1. MIRTAZAPINE [Concomitant]
  2. CYMBALTA [Suspect]
     Dosage: UNK
  3. RABEPRAZOLE SODIUM [Concomitant]
  4. ACETAMINOPHEN [Concomitant]
  5. CLOPIDOGREL [Concomitant]

REACTIONS (4)
  - ASPARTATE AMINOTRANSFERASE INCREASED [None]
  - GAMMA-GLUTAMYLTRANSFERASE INCREASED [None]
  - DRUG INTERACTION [None]
  - ALANINE AMINOTRANSFERASE INCREASED [None]
